FAERS Safety Report 10223018 (Version 1)
Quarter: 2014Q2

REPORT INFORMATION
  Report Type: Spontaneous
  Country: DE (occurrence: DE)
  Receive Date: 20140607
  Receipt Date: 20140607
  Transmission Date: 20141212
  Serious: Yes (Hospitalization)
  Sender: FDA-Public Use
  Company Number: GXKR2014DE002157

PATIENT
  Sex: 0

DRUGS (13)
  1. CLOZAPINE [Suspect]
     Dosage: 25 MG, UNK
     Route: 048
     Dates: start: 20130925, end: 20130928
  2. CLOZAPINE [Suspect]
     Dosage: 50 MG, UNK
     Route: 048
     Dates: start: 20130925
  3. CLOZAPINE [Suspect]
     Dosage: 75 MG, UNK
     Route: 048
     Dates: start: 20130930, end: 20131001
  4. CLOZAPINE [Suspect]
     Dosage: 100 MG, UNK
     Route: 048
     Dates: start: 20131002, end: 20131004
  5. CLOZAPINE [Suspect]
     Dosage: 125 MG, UNK
     Route: 048
     Dates: start: 20131005, end: 20131007
  6. CLOZAPINE [Suspect]
     Dosage: 150 MG, UNK
     Route: 048
     Dates: start: 20131008, end: 20131009
  7. CLOZAPINE [Suspect]
     Dosage: 175 MG, UNK
     Route: 048
     Dates: start: 20131010, end: 20131011
  8. SEROQUEL [Concomitant]
     Dosage: 300 MG, UNK
     Route: 048
     Dates: start: 20130917, end: 20131014
  9. ZYPREXA [Concomitant]
     Dosage: 15 MG, UNK
     Route: 048
     Dates: start: 20130915, end: 20130918
  10. ZYPREXA [Concomitant]
     Dosage: 20 MG, UNK
     Route: 048
     Dates: start: 20130919, end: 20130928
  11. ZYPREXA [Concomitant]
     Dosage: 15 MG, UNK
     Route: 048
     Dates: start: 20130929, end: 20131004
  12. ZYPREXA [Concomitant]
     Dosage: 10 MG, UNK
     Route: 048
     Dates: start: 20131005, end: 20131010
  13. ZYPREXA [Concomitant]
     Dosage: 2.5 MG, UNK
     Route: 048
     Dates: start: 20131011

REACTIONS (2)
  - Myocarditis [Recovered/Resolved]
  - Pericarditis [Recovered/Resolved]
